FAERS Safety Report 7815102-7 (Version None)
Quarter: 2011Q4

REPORT INFORMATION
  Report Type: 
  Country: None (occurrence: None)
  Receive Date: 20111014
  Receipt Date: 20111014
  Transmission Date: 20120403
  Serious: Yes (Other)
  Sender: FDA-Public Use
  Company Number: None

PATIENT
  Sex: Female

DRUGS (1)
  1. REBIF [Suspect]
     Indication: MULTIPLE SCLEROSIS
     Dosage: 22MCG
     Route: 058

REACTIONS (8)
  - GLOSSODYNIA [None]
  - PARAESTHESIA ORAL [None]
  - SKIN SWELLING [None]
  - WRONG TECHNIQUE IN DRUG USAGE PROCESS [None]
  - SKIN BURNING SENSATION [None]
  - SWOLLEN TONGUE [None]
  - PARAESTHESIA [None]
  - INCORRECT DOSE ADMINISTERED [None]
